FAERS Safety Report 5064493-1 (Version None)
Quarter: 2006Q3

REPORT INFORMATION
  Report Type: 
  Country: None (occurrence: None)
  Receive Date: 20060728
  Receipt Date: 20060724
  Transmission Date: 20061208
  Serious: Yes (Other)
  Sender: FDA-Public Use
  Company Number: US-AVENTIS-200616153US

PATIENT
  Sex: Female
  Weight: 105 kg

DRUGS (6)
  1. LANTUS [Suspect]
     Indication: DIABETES MELLITUS NON-INSULIN-DEPENDENT
     Dosage: DOSE: 10-20; DOSE UNIT: UNITS
     Dates: start: 20051101
  2. COZAAR [Concomitant]
     Dosage: DOSE: UNK
  3. VERAPAMIL [Concomitant]
     Dosage: DOSE: UNK
  4. HYDROCHLOROTHIAZIDE [Concomitant]
     Dosage: DOSE: UNK
  5. METFORMIN [Concomitant]
     Indication: DIABETES MELLITUS
     Dosage: DOSE: UNK
  6. DRUG USED IN DIABETES [Concomitant]
     Dosage: DOSE: UNK

REACTIONS (6)
  - BLINDNESS UNILATERAL [None]
  - COLOUR BLINDNESS [None]
  - IMPAIRED DRIVING ABILITY [None]
  - NIGHT BLINDNESS [None]
  - VISION BLURRED [None]
  - VISUAL DISTURBANCE [None]
